FAERS Safety Report 23521087 (Version 1)
Quarter: 2024Q1

REPORT INFORMATION
  Report Type: Spontaneous
  Country: US (occurrence: US)
  Receive Date: 20240214
  Receipt Date: 20240214
  Transmission Date: 20240409
  Serious: No
  Sender: FDA-Public Use
  Company Number: US-PADAGIS-2024PAD00150

PATIENT

DRUGS (1)
  1. BISACODYL [Suspect]
     Active Substance: BISACODYL
     Indication: Product used for unknown indication
     Dosage: UNK, QD
     Route: 054
     Dates: start: 202301

REACTIONS (3)
  - Bowel movement irregularity [None]
  - Ill-defined disorder [None]
  - Abdominal pain upper [None]

NARRATIVE: CASE EVENT DATE: 20230101
